FAERS Safety Report 21166137 (Version 1)
Quarter: 2022Q3

REPORT INFORMATION
  Report Type: Spontaneous
  Country: US (occurrence: None)
  Receive Date: 20220802
  Receipt Date: 20220802
  Transmission Date: 20221027
  Serious: Yes (Hospitalization)
  Sender: FDA-Public Use
  Company Number: None

PATIENT
  Age: 5 Day
  Sex: Female
  Weight: 3.70 kg

DRUGS (3)
  1. PHENOBARBITAL SODIUM [Suspect]
     Active Substance: PHENOBARBITAL SODIUM
     Indication: Neonatal epileptic seizure
     Route: 040
     Dates: start: 20220715, end: 20220718
  2. DOPAMINE [Concomitant]
     Active Substance: DOPAMINE HYDROCHLORIDE
     Dates: start: 20220715
  3. HYDROCORTISONE [Concomitant]
     Active Substance: HYDROCORTISONE
     Dates: start: 20220715

REACTIONS (6)
  - Pulmonary hypertension [None]
  - Malaise [None]
  - Brain injury [None]
  - Traumatic lung injury [None]
  - Renal injury [None]
  - Liver injury [None]

NARRATIVE: CASE EVENT DATE: 20220720
